FAERS Safety Report 9426716 (Version 2)
Quarter: 2014Q2

REPORT INFORMATION
  Report Type: Report from Study
  Country: CA (occurrence: CA)
  Receive Date: 20130730
  Receipt Date: 20140424
  Transmission Date: 20141212
  Serious: Yes (Life-Threatening)
  Sender: FDA-Public Use
  Company Number: CA-JNJFOC-20130715753

PATIENT
  Age: 64 Year
  Sex: Male
  Weight: 81.6 kg

DRUGS (1)
  1. REMICADE [Suspect]
     Indication: ANKYLOSING SPONDYLITIS
     Route: 042
     Dates: start: 20080925, end: 201307

REACTIONS (1)
  - Oesophageal carcinoma [Unknown]
